FAERS Safety Report 7330446-3 (Version None)
Quarter: 2011Q1

REPORT INFORMATION
  Report Type: 
  Country: None (occurrence: None)
  Receive Date: 20110304
  Receipt Date: 20110222
  Transmission Date: 20110831
  Serious: No
  Sender: FDA-Public Use
  Company Number: US-BIOGENIDEC-2011BI006954

PATIENT
  Age: 36 Year
  Sex: Male

DRUGS (2)
  1. ANTIHYTENSIVE MEDICATION (NOS) [Concomitant]
     Indication: HYPERTENSION
  2. TYSABRI [Suspect]
     Indication: MULTIPLE SCLEROSIS
     Route: 042
     Dates: start: 20080923

REACTIONS (2)
  - CHEST PAIN [None]
  - HYPOVENTILATION [None]
